FAERS Safety Report 18190921 (Version 2)
Quarter: 2021Q1

REPORT INFORMATION
  Report Type: Spontaneous
  Country: CA (occurrence: CA)
  Receive Date: 20200825
  Receipt Date: 20210223
  Transmission Date: 20210419
  Serious: Yes (Hospitalization, Disabling, Other)
  Sender: FDA-Public Use
  Company Number: CA-TEVA-2020-CA-1817454

PATIENT
  Age: 4 Day
  Sex: Male

DRUGS (14)
  1. CARBOPLATIN. [Suspect]
     Active Substance: CARBOPLATIN
     Route: 042
  2. ETOPOSIDE. [Suspect]
     Active Substance: ETOPOSIDE
     Indication: CHEMOTHERAPY
     Route: 042
  3. CARBOPLATIN. [Suspect]
     Active Substance: CARBOPLATIN
     Indication: CHEMOTHERAPY
     Route: 042
  4. DEXMEDETOMIDINE. [Concomitant]
     Active Substance: DEXMEDETOMIDINE
  5. VANCOMYCIN [Concomitant]
     Active Substance: VANCOMYCIN
  6. BLEOMYCIN SULPHATE FOR INJECTION USP [Suspect]
     Active Substance: BLEOMYCIN SULFATE
     Indication: CHEMOTHERAPY
     Dosage: 2 UNITS
     Route: 042
  7. DEXAMETHASONE. [Concomitant]
     Active Substance: DEXAMETHASONE
  8. MORPHINE [Concomitant]
     Active Substance: MORPHINE
  9. ONDANSETRON [Concomitant]
     Active Substance: ONDANSETRON
  10. TAZOCIN [Concomitant]
     Active Substance: PIPERACILLIN SODIUM\TAZOBACTAM SODIUM
  11. ETOPOSIDE. [Suspect]
     Active Substance: ETOPOSIDE
     Route: 042
  12. AMPICILLIN [Concomitant]
     Active Substance: AMPICILLIN
  13. FLUCONAZOLE. [Concomitant]
     Active Substance: FLUCONAZOLE
  14. ETOPOSIDE. [Suspect]
     Active Substance: ETOPOSIDE
     Route: 042

REACTIONS (8)
  - Nausea [Unknown]
  - Neutrophil count increased [Unknown]
  - Monocyte count increased [Unknown]
  - Neutropenia [Unknown]
  - Aplastic anaemia [Unknown]
  - White blood cell count increased [Unknown]
  - Pancytopenia [Unknown]
  - Thrombocytopenia [Unknown]
